FAERS Safety Report 5385950-4 (Version None)
Quarter: 2007Q3

REPORT INFORMATION
  Report Type: 
  Country: None (occurrence: None)
  Receive Date: 20070712
  Receipt Date: 20070704
  Transmission Date: 20080115
  Serious: Yes (Hospitalization)
  Sender: FDA-Public Use
  Company Number: JP-MERCK-0707USA01562

PATIENT
  Age: 80 Year
  Sex: Female

DRUGS (1)
  1. ZETIA [Suspect]
     Indication: TYPE IIA HYPERLIPIDAEMIA
     Route: 048
     Dates: start: 20070620, end: 20070630

REACTIONS (1)
  - ATRIAL FIBRILLATION [None]
